FAERS Safety Report 4663928-3 (Version None)
Quarter: 2005Q2

REPORT INFORMATION
  Report Type: 
  Country: None (occurrence: None)
  Receive Date: 20050413
  Receipt Date: 20041105
  Transmission Date: 20051028
  Serious: Yes (Hospitalization)
  Sender: FDA-Public Use
  Company Number: 2004-BP-11353BP

PATIENT
  Age: 76 Year
  Sex: Female
  Weight: 78.9 kg

DRUGS (5)
  1. MOBIC [Suspect]
     Indication: OSTEOARTHRITIS
     Dosage: 7.5 MG (7.5 MG), PO
     Route: 048
     Dates: start: 20041021, end: 20041028
  2. COUMADIN [Concomitant]
  3. DARVOCET-N 100 [Concomitant]
  4. DIGOXIN [Concomitant]
  5. RANESON [Concomitant]

REACTIONS (1)
  - CARDIAC FAILURE CONGESTIVE [None]
